FAERS Safety Report 6928567-X (Version None)
Quarter: 2010Q3

REPORT INFORMATION
  Report Type: 
  Country: None (occurrence: None)
  Receive Date: 20100817
  Receipt Date: 20100806
  Transmission Date: 20110219
  Serious: Yes (Hospitalization, Other)
  Sender: FDA-Public Use
  Company Number: JP-BRISTOL-MYERS SQUIBB COMPANY-15056302

PATIENT
  Age: 27 Year
  Sex: Female
  Weight: 53 kg

DRUGS (8)
  1. ABILIFY [Suspect]
     Indication: SCHIZOPHRENIA
     Dosage: ABILIFY TABS 6MG SEP07-AUG09:12MG QD DEC09-UNK:12MG QD, 12MG BID(01-20MAY10) 20D
     Route: 048
     Dates: start: 20070901, end: 20100520
  2. ABILIFY [Suspect]
     Indication: SCHIZOPHRENIA
     Dosage: ABILIFY ORAL SOLUTION 1%;31MAR-30APR10(12MGQD,31D);21MAY-02JUN10(24MGQD,20D);03-09JUN10(12MGQD,7D).
     Route: 048
     Dates: start: 20100331, end: 20100609
  3. RISPERDAL [Concomitant]
     Dosage: TABS
     Dates: start: 20061001, end: 20070901
  4. SEROQUEL [Concomitant]
     Dosage: TABS
     Dates: end: 20080901
  5. RITODRINE HYDROCHLORIDE [Concomitant]
     Dates: start: 20100321
  6. BENZALIN [Concomitant]
     Dosage: TABLET
     Dates: start: 20100331
  7. FERROSTEC [Concomitant]
     Dosage: TABLET
     Dates: start: 20100412, end: 20100526
  8. MAGMITT [Concomitant]
     Dosage: TABLET
     Dates: start: 20100412

REACTIONS (5)
  - GAZE PALSY [None]
  - GESTATIONAL HYPERTENSION [None]
  - PREMATURE LABOUR [None]
  - PSYCHIATRIC SYMPTOM [None]
  - TWIN PREGNANCY [None]
